FAERS Safety Report 16949528 (Version 2)
Quarter: 2019Q4

REPORT INFORMATION
  Report Type: Report from Study
  Country: None (occurrence: US)
  Receive Date: 20191023
  Receipt Date: 20191031
  Transmission Date: 20200122
  Serious: Yes (Other)
  Sender: FDA-Public Use
  Company Number: US-ABBVIE-19K-163-2971333-00

PATIENT
  Sex: Female

DRUGS (1)
  1. HUMIRA [Suspect]
     Active Substance: ADALIMUMAB
     Indication: RHEUMATOID ARTHRITIS
     Route: 058
     Dates: start: 20190423, end: 20191008

REACTIONS (9)
  - Loss of personal independence in daily activities [Unknown]
  - Impaired self-care [Unknown]
  - Depression [Unknown]
  - Back pain [Unknown]
  - Condition aggravated [Unknown]
  - Gait disturbance [Unknown]
  - Anxiety [Unknown]
  - Carpal tunnel syndrome [Unknown]
  - Pain [Unknown]

NARRATIVE: CASE EVENT DATE: 2019
